FAERS Safety Report 22741252 (Version 6)
Quarter: 2024Q1

REPORT INFORMATION
  Report Type: Spontaneous
  Country: US (occurrence: US)
  Receive Date: 20230724
  Receipt Date: 20240212
  Transmission Date: 20240410
  Serious: Yes (Hospitalization, Other)
  Sender: FDA-Public Use
  Company Number: US-SA-SAC20230721000073

PATIENT
  Age: 60 Year
  Sex: Male
  Weight: 62.59 kg

DRUGS (9)
  1. ELOCTATE [Suspect]
     Active Substance: EFMOROCTOCOG ALFA
     Indication: Factor VIII deficiency
     Dosage: 4000 U, PRN (DAILY AS NEEDED)
     Route: 042
     Dates: start: 201601
  2. ELOCTATE [Suspect]
     Active Substance: EFMOROCTOCOG ALFA
     Indication: Factor VIII deficiency
     Dosage: 4000 U, PRN (DAILY AS NEEDED)
     Route: 042
     Dates: start: 201601
  3. ELOCTATE [Suspect]
     Active Substance: EFMOROCTOCOG ALFA
     Dosage: 4000 U, TIW
     Route: 042
     Dates: start: 201601
  4. ELOCTATE [Suspect]
     Active Substance: EFMOROCTOCOG ALFA
     Dosage: 4000 U, TIW
     Route: 042
     Dates: start: 201601
  5. ELOCTATE [Suspect]
     Active Substance: EFMOROCTOCOG ALFA
     Dosage: 4000 U, PRN
     Route: 042
     Dates: start: 202211
  6. ELOCTATE [Suspect]
     Active Substance: EFMOROCTOCOG ALFA
     Dosage: 4000 U, PRN
     Route: 042
     Dates: start: 202211
  7. ELOCTATE [Suspect]
     Active Substance: EFMOROCTOCOG ALFA
     Dosage: 4000 U (3600-4400), TIW (MONDAY, WEDNESDAY AND FRIDAY IN THE MORNING)
     Route: 042
     Dates: start: 202211
  8. ELOCTATE [Suspect]
     Active Substance: EFMOROCTOCOG ALFA
     Dosage: 4000 U (3600-4400), TIW (MONDAY, WEDNESDAY AND FRIDAY IN THE MORNING)
     Route: 042
     Dates: start: 202211
  9. ODEFSEY [Concomitant]
     Active Substance: EMTRICITABINE\RILPIVIRINE HYDROCHLORIDE\TENOFOVIR ALAFENAMIDE FUMARATE
     Indication: HIV infection
     Dosage: UNK

REACTIONS (11)
  - Seizure [Unknown]
  - Coma [Recovered/Resolved]
  - Cerebral haemorrhage [Recovered/Resolved]
  - Head injury [Unknown]
  - Haemorrhage [Unknown]
  - Transient ischaemic attack [Unknown]
  - Headache [Unknown]
  - Arterial therapeutic procedure [Unknown]
  - Road traffic accident [Unknown]
  - Haemorrhage [Unknown]
  - Weight decreased [Unknown]

NARRATIVE: CASE EVENT DATE: 20230101
